FAERS Safety Report 20146013 (Version 1)
Quarter: 2021Q4

REPORT INFORMATION
  Report Type: Spontaneous
  Country: US (occurrence: None)
  Receive Date: 20211203
  Receipt Date: 20211203
  Transmission Date: 20220303
  Serious: Yes (Death)
  Sender: FDA-Public Use
  Company Number: None

PATIENT
  Age: 68 Year
  Sex: Female

DRUGS (10)
  1. ALECENSA [Suspect]
     Active Substance: ALECTINIB HYDROCHLORIDE
     Indication: Lung carcinoma cell type unspecified stage 0
     Route: 048
     Dates: start: 20211005
  2. BIOTIN TAB [Concomitant]
  3. CALCIUM CIT/TAB VIT D [Concomitant]
  4. CITALOPRAM TAB [Concomitant]
  5. ELIQUIS [Concomitant]
     Active Substance: APIXABAN
  6. FOLIC ACID TAB [Concomitant]
  7. GINGER [Concomitant]
     Active Substance: GINGER
  8. MAGNESIUM TAB [Concomitant]
  9. MORPHINE SUL TAB [Concomitant]
  10. PROMETHAZINE SYP DM [Concomitant]

REACTIONS (1)
  - Death [None]

NARRATIVE: CASE EVENT DATE: 20211120
